FAERS Safety Report 10880674 (Version 1)
Quarter: 2015Q1

REPORT INFORMATION
  Report Type: Spontaneous
  Country: US (occurrence: None)
  Receive Date: 20150225
  Receipt Date: 20150225
  Transmission Date: 20150721
  Serious: No
  Sender: FDA-Public Use
  Company Number: None

PATIENT
  Age: 12 Year
  Sex: Female

DRUGS (1)
  1. SUPPRELIN [Suspect]
     Active Substance: HISTRELIN ACETATE
     Dates: start: 20150129, end: 20150129

REACTIONS (6)
  - Peripheral swelling [None]
  - Rash [None]
  - Pain [None]
  - Urticaria [None]
  - Pruritus [None]
  - Post procedural complication [None]

NARRATIVE: CASE EVENT DATE: 20150130
